FAERS Safety Report 6132808-9 (Version None)
Quarter: 2009Q1

REPORT INFORMATION
  Report Type: 
  Country: None (occurrence: None)
  Receive Date: 20090325
  Receipt Date: 20090325
  Transmission Date: 20090719
  Serious: Yes (Hospitalization)
  Sender: FDA-Public Use
  Company Number: None

PATIENT
  Age: 22 Year
  Sex: Male
  Weight: 83.5 kg

DRUGS (1)
  1. ZOLPIDEM [Suspect]
     Indication: INSOMNIA
     Dosage: 10 MG UNKNOWN PO
     Route: 048
     Dates: start: 20090316, end: 20090317

REACTIONS (4)
  - ALCOHOL USE [None]
  - LETHARGY [None]
  - SEDATION [None]
  - UNRESPONSIVE TO STIMULI [None]
